FAERS Safety Report 9373171 (Version 1)
Quarter: 2013Q2

REPORT INFORMATION
  Report Type: Spontaneous
  Country: US (occurrence: US)
  Receive Date: 20130627
  Receipt Date: 20130627
  Transmission Date: 20140414
  Serious: Yes (Other)
  Sender: FDA-Public Use
  Company Number: PHEH2013US013757

PATIENT
  Sex: Female

DRUGS (8)
  1. VIVELLE DOT [Suspect]
     Dosage: 0.1 MG, TWICE A WEEK
     Route: 062
  2. AMLODIPINE [Concomitant]
     Dosage: 10 MG, QD
  3. LISINOPRIL [Concomitant]
     Dosage: 40 MG, BID
  4. SPIRONOLACTONE [Concomitant]
     Dosage: 25 MG, QD
  5. DEPAKOTE [Concomitant]
     Dosage: 500 MG, QD
  6. PLAVIX [Concomitant]
     Dosage: 75 MG, QD
  7. PROTONIX [Concomitant]
     Dosage: 40 MG, QD
  8. SINGULAIR [Concomitant]
     Dosage: 1 DF(PUFF), QD

REACTIONS (4)
  - Renal disorder [Unknown]
  - Dry skin [Unknown]
  - Rash [Unknown]
  - Skin irritation [Unknown]
